FAERS Safety Report 23874261 (Version 1)
Quarter: 2024Q2

REPORT INFORMATION
  Report Type: Other
  Country: CA (occurrence: None)
  Receive Date: 20240520
  Receipt Date: 20240520
  Transmission Date: 20240715
  Serious: Yes (Hospitalization, Other)
  Sender: FDA-Public Use
  Company Number: CA-ROCHE-3456900

PATIENT
  Age: 32 Year
  Sex: Female
  Weight: 66 kg

DRUGS (2)
  1. OCREVUS [Suspect]
     Active Substance: OCRELIZUMAB
     Indication: Relapsing-remitting multiple sclerosis
     Dosage: CONCENTRATE FOR INTRAVENOUS INFUSION,?THEN 600 MG EVERY 6 MONTHS
     Route: 042
     Dates: start: 20200524
  2. GABAPENTIN [Suspect]
     Active Substance: GABAPENTIN
     Indication: Product used for unknown indication
     Route: 065

REACTIONS (7)
  - Cerebral palsy [Unknown]
  - Pyelonephritis [Unknown]
  - Procedural anxiety [Recovered/Resolved]
  - Multiple sclerosis [Unknown]
  - Fall [Unknown]
  - Vertigo positional [Unknown]
  - Treatment failure [Unknown]

NARRATIVE: CASE EVENT DATE: 20231106
